FAERS Safety Report 18502063 (Version 1)
Quarter: 2020Q4

REPORT INFORMATION
  Report Type: Spontaneous
  Country: US (occurrence: US)
  Receive Date: 20201113
  Receipt Date: 20201113
  Transmission Date: 20210114
  Serious: Yes (Congenital Anomaly)
  Sender: FDA-Public Use
  Company Number: US-PFIZER INC-2020443763

PATIENT
  Age: 1 Month
  Sex: Female

DRUGS (2)
  1. ACETAMINOPHEN. [Suspect]
     Active Substance: ACETAMINOPHEN
     Dosage: UNK, SPARINGLY DURING PREGNANCY
     Route: 064
  2. HYDROCORTISONE ACETATE. [Suspect]
     Active Substance: HYDROCORTISONE ACETATE
     Dosage: UNK, BRIEFLY IN THE THIRD TRIMESTER
     Route: 064

REACTIONS (2)
  - Anomaly of external ear congenital [Unknown]
  - Maternal exposure during pregnancy [Unknown]
